FAERS Safety Report 11107984 (Version 1)
Quarter: 2015Q2

REPORT INFORMATION
  Report Type: Spontaneous
  Country: US (occurrence: US)
  Receive Date: 20150512
  Receipt Date: 20150512
  Transmission Date: 20150821
  Serious: No
  Sender: FDA-Public Use
  Company Number: US-GLAXOSMITHKLINE-US2015017102

PATIENT
  Age: 73 Year
  Sex: Female

DRUGS (30)
  1. UNKNOWN [Concomitant]
     Active Substance: UNSPECIFIED INGREDIENT
  2. GABAPENTIN. [Concomitant]
     Active Substance: GABAPENTIN
  3. HYDROCHLOROTHIAZIDE. [Concomitant]
     Active Substance: HYDROCHLOROTHIAZIDE
  4. REHYDRATION SOLUTION [Concomitant]
  5. HYALURONIC ACID [Concomitant]
     Active Substance: HYALURONIC ACID
  6. CHLOR-TRIMETON [Concomitant]
     Active Substance: CHLORPHENIRAMINE MALEATE
  7. INTRAMIN G [Concomitant]
  8. LYSINE [Concomitant]
     Active Substance: LYSINE
  9. OCEAN SALINE NASAL SPRAY [Concomitant]
     Active Substance: SODIUM CHLORIDE
  10. SYSTANE EYEDROPS [Concomitant]
     Active Substance: POLYETHYLENE GLYCOL 400\PROPYLENE GLYCOL
  11. FLONASE [Suspect]
     Active Substance: FLUTICASONE PROPIONATE
     Indication: HYPERSENSITIVITY
     Dosage: UNK
     Dates: start: 20150207, end: 20150208
  12. ACETAMINOPHEN. [Concomitant]
     Active Substance: ACETAMINOPHEN
  13. CLONAZEPAM. [Concomitant]
     Active Substance: CLONAZEPAM
  14. FISH OIL [Concomitant]
     Active Substance: FISH OIL
  15. INTRAMAX [Concomitant]
  16. TRAMADOL HYDROCHLORIDE. [Concomitant]
     Active Substance: TRAMADOL HYDROCHLORIDE
  17. HEMORRHOID CREAM [Concomitant]
  18. LIVALO [Concomitant]
     Active Substance: PITAVASTATIN CALCIUM
  19. MEDERMA [Concomitant]
     Active Substance: AVOBENZONE\OCTOCRYLENE\OXYBENZONE
  20. ARNICA MONTANA. [Concomitant]
     Active Substance: ARNICA MONTANA
  21. CHLOROSEPTIC SPRAY (PHENOL) [Concomitant]
  22. PROBIOTIC [Concomitant]
     Active Substance: PROBIOTICS NOS
  23. VITAMIN D3 [Concomitant]
     Active Substance: CHOLECALCIFEROL
  24. HONEY + LEMON [Concomitant]
  25. BIOTIN [Concomitant]
     Active Substance: BIOTIN
  26. BOIRON ARNICA MONTANA 200CK [Concomitant]
  27. LACTAID [Concomitant]
     Active Substance: LACTASE
  28. METOPROLOL [Concomitant]
     Active Substance: METOPROLOL
  29. MIRALAX [Concomitant]
     Active Substance: POLYETHYLENE GLYCOL 3350
  30. PAIN AID [Concomitant]

REACTIONS (3)
  - Feeling hot [Not Recovered/Not Resolved]
  - Vision blurred [Not Recovered/Not Resolved]
  - Erythema [Not Recovered/Not Resolved]

NARRATIVE: CASE EVENT DATE: 20150207
